FAERS Safety Report 7591531-4 (Version None)
Quarter: 2011Q3

REPORT INFORMATION
  Report Type: 
  Country: None (occurrence: None)
  Receive Date: 20110701
  Receipt Date: 20110701
  Transmission Date: 20111222
  Serious: Yes (Death, Hospitalization)
  Sender: FDA-Public Use
  Company Number: None

PATIENT
  Sex: Female
  Weight: 81.1 kg

DRUGS (1)
  1. DOCETAXEL [Suspect]
     Dosage: 799 MG

REACTIONS (6)
  - HYPERSENSITIVITY [None]
  - LEUKOPENIA [None]
  - BLOOD CREATINE INCREASED [None]
  - OVARIAN CANCER [None]
  - ATRIAL FIBRILLATION [None]
  - ACUTE MYELOID LEUKAEMIA [None]
